FAERS Safety Report 13600885 (Version 2)
Quarter: 2018Q3

REPORT INFORMATION
  Report Type: Spontaneous
  Country: IN (occurrence: IN)
  Receive Date: 20170601
  Receipt Date: 20180709
  Transmission Date: 20181010
  Serious: Yes (Other)
  Sender: FDA-Public Use
  Company Number: IN-STRIDES ARCOLAB LIMITED-2017SP008932

PATIENT

DRUGS (6)
  1. PARACETAMOL [Concomitant]
     Active Substance: ACETAMINOPHEN
     Indication: DIARRHOEA
     Dosage: 500 MG, EVERY 12 HRS
     Route: 065
  2. NORFLOXACIN [Suspect]
     Active Substance: NORFLOXACIN
     Indication: DIARRHOEA
  3. METRONIDAZOLE. [Suspect]
     Active Substance: METRONIDAZOLE
     Indication: DIARRHOEA
  4. NORFLOXACIN [Suspect]
     Active Substance: NORFLOXACIN
     Indication: ABDOMINAL PAIN
     Dosage: 400 MG, EVERY 12 HRS
     Route: 065
  5. METRONIDAZOLE. [Suspect]
     Active Substance: METRONIDAZOLE
     Indication: ABDOMINAL PAIN
     Dosage: 400 MG, EVERY 8 HOURS (TABLET)
     Route: 065
  6. LOMINE [Concomitant]
     Indication: DIARRHOEA
     Dosage: EVERY 12 HRS
     Route: 065

REACTIONS (4)
  - Rash generalised [Recovered/Resolved]
  - Pruritus generalised [Recovered/Resolved]
  - Fixed eruption [Recovered/Resolved]
  - Rash erythematous [Recovered/Resolved]
